FAERS Safety Report 6072060-6 (Version None)
Quarter: 2009Q1

REPORT INFORMATION
  Report Type: 
  Country: None (occurrence: None)
  Receive Date: 20090205
  Receipt Date: 20090205
  Transmission Date: 20090719
  Serious: Yes (Other)
  Sender: FDA-Public Use
  Company Number: None

PATIENT
  Age: 46 Year
  Sex: Female
  Weight: 101.6057 kg

DRUGS (1)
  1. AVINZA [Suspect]
     Indication: BACK PAIN
     Dosage: 2 CAPSULES AT BED TIME PO
     Route: 048
     Dates: start: 20081110, end: 20090201

REACTIONS (9)
  - ACCIDENT [None]
  - AMNESIA [None]
  - CONTUSION [None]
  - HALLUCINATION [None]
  - INTERVERTEBRAL DISC PROTRUSION [None]
  - ROTATOR CUFF SYNDROME [None]
  - SLEEP TALKING [None]
  - SOMNAMBULISM [None]
  - SPINAL DISORDER [None]
